FAERS Safety Report 5564145-5 (Version None)
Quarter: 2007Q4

REPORT INFORMATION
  Report Type: 
  Country: None (occurrence: None)
  Receive Date: 20071217
  Receipt Date: 20071205
  Transmission Date: 20080405
  Serious: Yes (Other)
  Sender: FDA-Public Use
  Company Number: US-PFIZER INC-2007103578

PATIENT
  Sex: Female
  Weight: 68.9 kg

DRUGS (1)
  1. CHANTIX [Suspect]

REACTIONS (11)
  - ABNORMAL DREAMS [None]
  - BLOOD PRESSURE INCREASED [None]
  - CONSTIPATION [None]
  - DRUG INEFFECTIVE [None]
  - DYSPNOEA [None]
  - FLATULENCE [None]
  - INCREASED APPETITE [None]
  - RASH [None]
  - SURGERY [None]
  - WEIGHT INCREASED [None]
  - WHEEZING [None]
